FAERS Safety Report 25730548 (Version 1)
Quarter: 2025Q3

REPORT INFORMATION
  Report Type: Spontaneous
  Country: EU (occurrence: EU)
  Receive Date: 20250827
  Receipt Date: 20250827
  Transmission Date: 20251020
  Serious: Yes (Hospitalization, Other)
  Sender: CHEPLAPHARM
  Company Number: None

PATIENT
  Age: 54 Year
  Sex: Female

DRUGS (2)
  1. QUETIAPINE [Suspect]
     Active Substance: QUETIAPINE
     Indication: Bipolar disorder
     Dosage: INCREASE IN QUETIAPINE FROM 400 TO 600 MG IN MAY?DAILY DOSE: 600 MILLIGRAM
     Route: 048
     Dates: start: 202505, end: 20250801
  2. QUETIAPINE [Suspect]
     Active Substance: QUETIAPINE
     Indication: Bipolar disorder
     Dosage: DAILY DOSE: 400 MILLIGRAM
     Route: 048
     Dates: end: 202505

REACTIONS (3)
  - Neuroleptic malignant syndrome [Recovered/Resolved]
  - Facial paralysis [Unknown]
  - Adverse event [Unknown]

NARRATIVE: CASE EVENT DATE: 20250727
